FAERS Safety Report 8126380-1 (Version None)
Quarter: 2012Q1

REPORT INFORMATION
  Report Type: 
  Country: None (occurrence: None)
  Receive Date: 20120209
  Receipt Date: 20120202
  Transmission Date: 20120608
  Serious: Yes (Hospitalization, Other)
  Sender: FDA-Public Use
  Company Number: US-MERCK-1109USA02129

PATIENT
  Age: 65 Year
  Sex: Female
  Weight: 91 kg

DRUGS (3)
  1. FOSAMAX [Suspect]
     Route: 048
     Dates: start: 19960101, end: 20090101
  2. FOSAMAX [Suspect]
     Indication: OSTEOPOROSIS
     Route: 048
     Dates: end: 20090101
  3. ALENDRONATE SODIUM [Suspect]
     Route: 065
     Dates: start: 20090101, end: 20090401

REACTIONS (35)
  - DEEP VEIN THROMBOSIS [None]
  - ROTATOR CUFF SYNDROME [None]
  - SPINAL OSTEOARTHRITIS [None]
  - URINARY INCONTINENCE [None]
  - BONE ABSCESS [None]
  - SPINAL HAEMATOMA [None]
  - INTERVERTEBRAL DISC PROTRUSION [None]
  - TOOTH DISORDER [None]
  - CORONARY ARTERY DISEASE [None]
  - LOW TURNOVER OSTEOPATHY [None]
  - HEADACHE [None]
  - FOOT DEFORMITY [None]
  - HYPERLIPIDAEMIA [None]
  - COLONIC POLYP [None]
  - INTERVERTEBRAL DISC DEGENERATION [None]
  - PULMONARY HYPERTENSION [None]
  - TENDONITIS [None]
  - HYPERTENSION [None]
  - PAIN IN EXTREMITY [None]
  - SPINAL COLUMN STENOSIS [None]
  - DIZZINESS [None]
  - FEMUR FRACTURE [None]
  - HIP FRACTURE [None]
  - DENTAL CARIES [None]
  - OSTEOARTHRITIS [None]
  - SCIATICA [None]
  - PARKINSON'S DISEASE [None]
  - OSTEOPENIA [None]
  - METATARSALGIA [None]
  - VASCULAR CALCIFICATION [None]
  - GASTROOESOPHAGEAL REFLUX DISEASE [None]
  - SPINAL FRACTURE [None]
  - PULMONARY EMBOLISM [None]
  - TOOTH FRACTURE [None]
  - ARTERIOSCLEROSIS CORONARY ARTERY [None]
